FAERS Safety Report 23674302 (Version 1)
Quarter: 2024Q1

REPORT INFORMATION
  Report Type: Spontaneous
  Country: US (occurrence: US)
  Receive Date: 20240326
  Receipt Date: 20240326
  Transmission Date: 20240409
  Serious: Yes (Other)
  Sender: FDA-Public Use
  Company Number: US-SA-2024SA092045

PATIENT

DRUGS (3)
  1. CAMPATH [Suspect]
     Active Substance: ALEMTUZUMAB
     Indication: Aplastic anaemia
     Dosage: 1 MG (TEST DOSE)
  2. CAMPATH [Suspect]
     Active Substance: ALEMTUZUMAB
     Dosage: 10 MG, QD
  3. PENTAMIDINE [Concomitant]
     Active Substance: PENTAMIDINE
     Indication: Antifungal prophylaxis
     Dosage: UNK UNK, QM

REACTIONS (4)
  - Progressive multifocal leukoencephalopathy [Unknown]
  - Neurological decompensation [Unknown]
  - JC virus infection [Unknown]
  - Off label use [Unknown]
